FAERS Safety Report 7716467-7 (Version None)
Quarter: 2011Q3

REPORT INFORMATION
  Report Type: 
  Country: None (occurrence: None)
  Receive Date: 20110829
  Receipt Date: 20110825
  Transmission Date: 20111222
  Serious: Yes (Death, Other)
  Sender: FDA-Public Use
  Company Number: PHHY2011GB75483

PATIENT
  Age: 54 Year
  Sex: Female

DRUGS (4)
  1. CODEINE [Concomitant]
  2. MORPHINE [Concomitant]
  3. TRAMADOL HCL [Suspect]
  4. ACETAMINOPHEN [Suspect]

REACTIONS (5)
  - TOXICITY TO VARIOUS AGENTS [None]
  - DRUG LEVEL INCREASED [None]
  - COMPLETED SUICIDE [None]
  - OVERDOSE [None]
  - RESPIRATORY ARREST [None]
